FAERS Safety Report 4398343-3 (Version None)
Quarter: 2004Q3

REPORT INFORMATION
  Report Type: 
  Country: None (occurrence: None)
  Receive Date: 20040714
  Receipt Date: 20040714
  Transmission Date: 20050211
  Serious: Yes (Hospitalization)
  Sender: FDA-Public Use
  Company Number: None

PATIENT
  Age: 56 Year
  Sex: Female
  Weight: 150.8 kg

DRUGS (2)
  1. ASPIRIN [Suspect]
     Indication: HYPOAESTHESIA
     Dosage: 1-3 X1 WEEK
  2. ASPIRIN [Suspect]
     Indication: PAIN
     Dosage: 1-3 X1 WEEK

REACTIONS (3)
  - FAECAL OCCULT BLOOD POSITIVE [None]
  - FAECES DISCOLOURED [None]
  - SYNCOPE [None]
